FAERS Safety Report 23505308 (Version 2)
Quarter: 2024Q2

REPORT INFORMATION
  Report Type: Report from Study
  Country: US (occurrence: US)
  Receive Date: 20240209
  Receipt Date: 20240502
  Transmission Date: 20240716
  Serious: Yes (Other)
  Sender: FDA-Public Use
  Company Number: US-ABBVIE-5625065

PATIENT
  Sex: Female

DRUGS (2)
  1. RINVOQ [Suspect]
     Active Substance: UPADACITINIB
     Indication: Rheumatoid arthritis
     Route: 048
     Dates: start: 20230920
  2. RINVOQ [Suspect]
     Active Substance: UPADACITINIB
     Indication: Rheumatoid arthritis
     Route: 048
     Dates: start: 202403

REACTIONS (7)
  - Limb operation [Recovered/Resolved]
  - Bursitis [Recovered/Resolved]
  - Postoperative wound infection [Not Recovered/Not Resolved]
  - Skin cancer [Recovered/Resolved]
  - Rheumatoid arthritis [Recovered/Resolved]
  - Solar lentigo [Not Recovered/Not Resolved]
  - Impaired healing [Recovered/Resolved]
